FAERS Safety Report 4716603-0 (Version None)
Quarter: 2005Q3

REPORT INFORMATION
  Report Type: 
  Country: None (occurrence: None)
  Receive Date: 20050718
  Receipt Date: 20050706
  Transmission Date: 20060218
  Serious: Yes (Hospitalization)
  Sender: FDA-Public Use
  Company Number: 05-07-1173

PATIENT
  Age: 70 Year
  Sex: Female

DRUGS (11)
  1. FUROSEMIDE [Suspect]
     Dosage: ORAL
     Route: 048
  2. SPIRONOLACTONE UNKNOWN [Suspect]
     Dosage: ORAL
     Route: 048
  3. PERINDOPRIL [Suspect]
     Dosage: ORAL
     Route: 048
  4. METFORMIN [Concomitant]
  5. GLICLAZIDE [Concomitant]
  6. LANSOPRAZOLE [Concomitant]
  7. ATORVASTATIN CALCIUM [Concomitant]
  8. PROPRANOLOL [Concomitant]
  9. LOFEPRAMINE [Concomitant]
  10. ALLOPURINOL [Concomitant]
  11. TAMOXIFEN CITRATE [Concomitant]

REACTIONS (1)
  - RENAL FAILURE ACUTE [None]
